FAERS Safety Report 13374500 (Version 1)
Quarter: 2017Q1

REPORT INFORMATION
  Report Type: Spontaneous
  Country: BE (occurrence: BE)
  Receive Date: 20170327
  Receipt Date: 20170327
  Transmission Date: 20170429
  Serious: Yes (Hospitalization, Disabling)
  Sender: FDA-Public Use
  Company Number: BE-PFIZER INC-2017129002

PATIENT
  Age: 64 Year
  Sex: Male

DRUGS (3)
  1. TRANSTEC [Concomitant]
     Active Substance: BUPRENORPHINE
     Dosage: UNK
  2. SINTROM [Concomitant]
     Active Substance: ACENOCOUMAROL
     Dosage: UNK
  3. SUTENT [Suspect]
     Active Substance: SUNITINIB MALATE
     Indication: RENAL CANCER METASTATIC
     Dosage: 50 MG, 1X/DAY (4 WEEKS ON, 2 WEEKS OFF)
     Route: 048
     Dates: start: 20161031, end: 20161123

REACTIONS (7)
  - Productive cough [Unknown]
  - Herpes virus infection [Unknown]
  - Aplasia [Unknown]
  - Constipation [Unknown]
  - Cholestasis [Unknown]
  - Dyspnoea [Unknown]
  - Disseminated intravascular coagulation [Unknown]
